FAERS Safety Report 15807529 (Version 2)
Quarter: 2019Q1

REPORT INFORMATION
  Report Type: Spontaneous
  Country: FR (occurrence: FR)
  Receive Date: 20190110
  Receipt Date: 20190212
  Transmission Date: 20190417
  Serious: Yes (Other)
  Sender: FDA-Public Use
  Company Number: PHHY2019FR001115

PATIENT
  Age: 69 Year
  Sex: Male
  Weight: 84 kg

DRUGS (5)
  1. RYDAPT [Suspect]
     Active Substance: MIDOSTAURIN
     Indication: SYSTEMIC MASTOCYTOSIS
     Dosage: 200 MG, QD
     Route: 048
     Dates: start: 201601, end: 201809
  2. AERIUS [Concomitant]
     Indication: PRODUCT USED FOR UNKNOWN INDICATION
     Dosage: 1 DF, QD
     Route: 065
     Dates: start: 2012
  3. SINGULAIR [Concomitant]
     Active Substance: MONTELUKAST SODIUM
     Indication: PRODUCT USED FOR UNKNOWN INDICATION
     Dosage: 10 MG, QD
     Route: 065
     Dates: start: 2012
  4. RYDAPT [Suspect]
     Active Substance: MIDOSTAURIN
     Dosage: 100 MG, QD
     Route: 048
     Dates: start: 20181108, end: 20190204
  5. ZADITEN [Concomitant]
     Active Substance: KETOTIFEN FUMARATE
     Indication: PRODUCT USED FOR UNKNOWN INDICATION
     Dosage: 1 DF, QD
     Route: 065
     Dates: start: 201502

REACTIONS (7)
  - Thyroid disorder [Recovering/Resolving]
  - Blood thyroid stimulating hormone decreased [Unknown]
  - Blood alkaline phosphatase increased [Unknown]
  - Bilirubin conjugated increased [Unknown]
  - Cholestasis [Recovering/Resolving]
  - Gamma-glutamyltransferase increased [Unknown]
  - Liver disorder [Recovering/Resolving]

NARRATIVE: CASE EVENT DATE: 201709
